FAERS Safety Report 9323405 (Version 1)
Quarter: 2013Q2

REPORT INFORMATION
  Report Type: Spontaneous
  Country: US (occurrence: US)
  Receive Date: 20130603
  Receipt Date: 20130603
  Transmission Date: 20140414
  Serious: Yes (Other)
  Sender: FDA-Public Use
  Company Number: US-SANOFI-AVENTIS-2013SA052296

PATIENT
  Age: 43 Year
  Sex: Male

DRUGS (2)
  1. LANTUS SOLOSTAR [Suspect]
  2. SOLOSTAR [Suspect]

REACTIONS (3)
  - Macular degeneration [Unknown]
  - Visual impairment [Unknown]
  - Blood glucose abnormal [Unknown]
